FAERS Safety Report 8839412 (Version 2)
Quarter: 2012Q4

REPORT INFORMATION
  Report Type: 
  Country: CN (occurrence: CN)
  Receive Date: 20121015
  Receipt Date: 20121106
  Transmission Date: 20130627
  Serious: Yes (Other)
  Sender: FDA-Public Use
  Company Number: CN-JNJFOC-20121005342

PATIENT
  Age: 19 Year
  Sex: Female

DRUGS (2)
  1. TYLENOL AP [Suspect]
     Route: 048
  2. TYLENOL AP [Suspect]
     Indication: ANTIPYRESIS
     Route: 048
     Dates: start: 20091029, end: 20091029

REACTIONS (3)
  - Chest discomfort [Recovered/Resolved]
  - Dyspnoea [Recovered/Resolved]
  - Rash pruritic [Recovered/Resolved]
